FAERS Safety Report 11778232 (Version 1)
Quarter: 2015Q4

REPORT INFORMATION
  Report Type: Report from Study
  Country: US (occurrence: None)
  Receive Date: 20151125
  Receipt Date: 20151125
  Transmission Date: 20160304
  Serious: Yes (Hospitalization, Other)
  Sender: FDA-Public Use
  Company Number: US-MDT-ADR-2015-02235

PATIENT
  Age: 14 Year
  Sex: Male

DRUGS (2)
  1. LIORESAL [Suspect]
     Active Substance: BACLOFEN
     Indication: MUSCLE SPASTICITY
  2. GABLOFEN [Suspect]
     Active Substance: BACLOFEN

REACTIONS (12)
  - Muscle spasticity [None]
  - Agitation [None]
  - Hypertonia [None]
  - Urinary tract infection [None]
  - Device occlusion [None]
  - Device kink [None]
  - Muscle tightness [None]
  - Hypotonia [None]
  - Irritability [None]
  - Sedation [None]
  - No therapeutic response [None]
  - Drug withdrawal syndrome [None]
